FAERS Safety Report 9023445 (Version 4)
Quarter: 2013Q1

REPORT INFORMATION
  Report Type: Report from Study
  Country: US (occurrence: US)
  Receive Date: 20130121
  Receipt Date: 20130222
  Transmission Date: 20140127
  Serious: Yes (Other)
  Sender: FDA-Public Use
  Company Number: US-BAXTER-2013BAX002360

PATIENT
  Age: 16 None
  Sex: Male
  Weight: 80.91 kg

DRUGS (13)
  1. GAMMAGARD LIQUID [Suspect]
     Indication: PRIMARY IMMUNODEFICIENCY SYNDROME
     Route: 058
     Dates: start: 201207, end: 201207
  2. GAMMAGARD LIQUID [Suspect]
     Route: 058
     Dates: start: 20130113, end: 20130113
  3. GAMMAGARD LIQUID [Suspect]
     Route: 058
     Dates: start: 20130113, end: 20130113
  4. ADDERALL [Concomitant]
     Indication: ATTENTION DEFICIT/HYPERACTIVITY DISORDER
     Route: 048
  5. STRATTERA [Concomitant]
     Indication: ATTENTION DEFICIT/HYPERACTIVITY DISORDER
     Route: 048
  6. PRILOSEC [Concomitant]
     Indication: PRODUCT USED FOR UNKNOWN INDICATION
     Route: 048
  7. LEVOTHYROXINE [Concomitant]
     Indication: THYROID DISORDER
     Route: 048
  8. SINGULAIR [Concomitant]
     Indication: HYPERSENSITIVITY
     Route: 048
  9. ZYRTEC [Concomitant]
     Indication: HYPERSENSITIVITY
     Route: 048
  10. QVAR [Concomitant]
     Indication: ASTHMA
     Dosage: 1 PUFF
  11. DULERA [Concomitant]
     Indication: ASTHMA
     Dosage: 1 PUFF
  12. XOPENEX [Concomitant]
     Indication: ASTHMA
  13. EPIPEN [Concomitant]
     Indication: HYPERSENSITIVITY

REACTIONS (7)
  - Sinusitis [Recovered/Resolved]
  - Nasopharyngitis [Recovering/Resolving]
  - Dyspnoea [Recovered/Resolved]
  - Pyrexia [Recovered/Resolved]
  - Headache [Recovered/Resolved]
  - Anxiety [Recovered/Resolved]
  - Chest discomfort [Recovered/Resolved]
